FAERS Safety Report 5688170-9 (Version None)
Quarter: 2008Q1

REPORT INFORMATION
  Report Type: 
  Country: None (occurrence: None)
  Receive Date: 20080327
  Receipt Date: 20080312
  Transmission Date: 20080703
  Serious: Yes (Other)
  Sender: FDA-Public Use
  Company Number: JPI-P-003193

PATIENT
  Age: 48 Year
  Sex: Female

DRUGS (5)
  1. LUVOX [Suspect]
     Indication: SOCIAL PHOBIA
     Dosage: (50 MG,1 D), ORAL; (75 MG,1 D), ORAL; (25 MG,1 D), ORAL; (12.5 MG, D),ORAL
     Route: 048
     Dates: start: 20060628, end: 20060704
  2. LUVOX [Suspect]
     Indication: SOCIAL PHOBIA
     Dosage: (50 MG,1 D), ORAL; (75 MG,1 D), ORAL; (25 MG,1 D), ORAL; (12.5 MG, D),ORAL
     Route: 048
     Dates: start: 20060705, end: 20060718
  3. LUVOX [Suspect]
     Indication: SOCIAL PHOBIA
     Dosage: (50 MG,1 D), ORAL; (75 MG,1 D), ORAL; (25 MG,1 D), ORAL; (12.5 MG, D),ORAL
     Route: 048
     Dates: start: 20060719, end: 20060829
  4. LUVOX [Suspect]
     Indication: SOCIAL PHOBIA
     Dosage: (50 MG,1 D), ORAL; (75 MG,1 D), ORAL; (25 MG,1 D), ORAL; (12.5 MG, D),ORAL
     Route: 048
     Dates: start: 20060830, end: 20060906
  5. ALPRAZOLAM [Concomitant]

REACTIONS (6)
  - DIZZINESS [None]
  - FEELING ABNORMAL [None]
  - MALAISE [None]
  - SEDATION [None]
  - SOMNOLENCE [None]
  - TREATMENT NONCOMPLIANCE [None]
